FAERS Safety Report 4840153-4 (Version None)
Quarter: 2005Q4

REPORT INFORMATION
  Report Type: 
  Country: None (occurrence: None)
  Receive Date: 20051123
  Receipt Date: 20051110
  Transmission Date: 20060501
  Serious: Yes (Other)
  Sender: FDA-Public Use
  Company Number: US-2005-022935

PATIENT
  Age: 50 Year
  Sex: Male

DRUGS (5)
  1. BETASERON [Suspect]
     Indication: RELAPSING-REMITTING MULTIPLE SCLEROSIS
     Dosage: 8 MIU, EVERY 2 D, SUBCUTANEOUS
     Route: 058
     Dates: start: 20041103
  2. METFORMIN HCL [Concomitant]
  3. PRINIVIL [Concomitant]
  4. LIPITOR [Concomitant]
  5. TYLENOL [Concomitant]

REACTIONS (2)
  - NEOPLASM PROGRESSION [None]
  - THYROID NEOPLASM [None]
